FAERS Safety Report 6494376-1 (Version None)
Quarter: 2009Q4

REPORT INFORMATION
  Report Type: 
  Country: None (occurrence: None)
  Receive Date: 20091214
  Receipt Date: 20090526
  Transmission Date: 20100525
  Serious: No
  Sender: FDA-Public Use
  Company Number: US-BRISTOL-MYERS SQUIBB COMPANY-14503957

PATIENT
  Age: 23 Year
  Sex: Female

DRUGS (5)
  1. ABILIFY [Suspect]
     Indication: BIPOLAR DISORDER
     Dosage: 20MG ATHS; ROUTE: BY MOUTH
     Route: 048
     Dates: start: 20070201
  2. ZOLOFT [Concomitant]
     Dosage: 1 DOSAGE FORM = 150(UNIT NOT SPECIFIED)
  3. KLONOPIN [Concomitant]
     Dosage: 1 DOSAGE FORM = 0.5(UNIT NOT SPECIFIED)
  4. BENADRYL [Concomitant]
     Indication: INSOMNIA
  5. ADVIL PM [Concomitant]

REACTIONS (1)
  - BREAST DISCHARGE [None]
